FAERS Safety Report 15094477 (Version 2)
Quarter: 2018Q3

REPORT INFORMATION
  Report Type: Spontaneous
  Country: ES (occurrence: ES)
  Receive Date: 20180630
  Receipt Date: 20180706
  Transmission Date: 20181010
  Serious: Yes (Other)
  Sender: FDA-Public Use
  Company Number: ES-AUROBINDO-AUR-APL-2018-032996

PATIENT
  Age: 43 Year
  Sex: Male

DRUGS (3)
  1. SIMVASTATIN FILM?COATED TABLET [Suspect]
     Active Substance: SIMVASTATIN
     Dosage: 400 MG, QD
     Route: 048
  2. SIMVASTATIN FILM?COATED TABLET [Suspect]
     Active Substance: SIMVASTATIN
     Indication: PRODUCT USED FOR UNKNOWN INDICATION
     Dosage: 40 MILLIGRAM
     Route: 065
  3. SIMVASTATIN FILM?COATED TABLET [Suspect]
     Active Substance: SIMVASTATIN
     Dosage: 400 MG, QD
     Route: 048

REACTIONS (3)
  - Unmasking of previously unidentified disease [Unknown]
  - Blood creatine phosphokinase increased [Recovering/Resolving]
  - Myalgia [Recovering/Resolving]
